FAERS Safety Report 24390818 (Version 2)
Quarter: 2024Q4

REPORT INFORMATION
  Report Type: Spontaneous
  Country: CO (occurrence: CO)
  Receive Date: 20241003
  Receipt Date: 20241126
  Transmission Date: 20250115
  Serious: No
  Sender: AMGEN
  Company Number: CO-AMGEN-COLSP2024193710

PATIENT
  Age: 36 Year
  Sex: Male

DRUGS (2)
  1. PEGFILGRASTIM [Suspect]
     Active Substance: PEGFILGRASTIM
     Indication: Product used for unknown indication
     Dosage: 6 MILLIGRAM, 0.6ML-KIT OBI
     Route: 065
  2. PEGFILGRASTIM [Suspect]
     Active Substance: PEGFILGRASTIM
     Dosage: 6 MILLIGRAM, 0.6ML-KIT OBI
     Route: 065

REACTIONS (2)
  - Wrong technique in product usage process [Unknown]
  - Device occlusion [Unknown]

NARRATIVE: CASE EVENT DATE: 20240901
